FAERS Safety Report 4370561-X (Version None)
Quarter: 2004Q2

REPORT INFORMATION
  Report Type: 
  Country: None (occurrence: None)
  Receive Date: 20040603
  Receipt Date: 20040601
  Transmission Date: 20050107
  Serious: Yes (Hospitalization, Disabling, Other)
  Sender: FDA-Public Use
  Company Number: US-MERCK-0406USA00070

PATIENT
  Age: 75 Year
  Sex: Female

DRUGS (12)
  1. LOTENSIN [Concomitant]
     Route: 048
     Dates: start: 20030110
  2. BUMEX [Concomitant]
     Indication: OEDEMA
     Route: 048
     Dates: start: 20030116
  3. ZETIA [Concomitant]
     Indication: LOW DENSITY LIPOPROTEIN INCREASED
     Route: 048
     Dates: start: 20040316, end: 20040416
  4. LOPID [Concomitant]
     Indication: BLOOD TRIGLYCERIDES INCREASED
     Route: 048
     Dates: start: 20040217, end: 20040416
  5. LOPID [Concomitant]
     Route: 048
     Dates: start: 20040106, end: 20040201
  6. GLIPIZIDE [Concomitant]
     Indication: BLOOD TRIGLYCERIDES INCREASED
     Route: 048
     Dates: start: 20030605
  7. GLIPIZIDE [Concomitant]
     Indication: BLOOD GLUCOSE INCREASED
     Route: 048
     Dates: start: 20030605
  8. LEVOXYL [Concomitant]
     Route: 048
     Dates: start: 20030110
  9. ZOCOR [Suspect]
     Indication: BLOOD CHOLESTEROL INCREASED
     Route: 048
     Dates: start: 20030715, end: 20031001
  10. ZOCOR [Suspect]
     Route: 048
     Dates: start: 20031021, end: 20040416
  11. ZOCOR [Suspect]
     Indication: LOW DENSITY LIPOPROTEIN INCREASED
     Route: 048
     Dates: start: 20030715, end: 20031001
  12. ZOCOR [Suspect]
     Route: 048
     Dates: start: 20031021, end: 20040416

REACTIONS (1)
  - MUSCULOSKELETAL STIFFNESS [None]
